FAERS Safety Report 7641711-4 (Version None)
Quarter: 2011Q3

REPORT INFORMATION
  Report Type: 
  Country: None (occurrence: None)
  Receive Date: 20110728
  Receipt Date: 20110720
  Transmission Date: 20111222
  Serious: Yes (Other)
  Sender: FDA-Public Use
  Company Number: JP-BAXTER-2011BH022085

PATIENT
  Age: 66 Year
  Sex: Female
  Weight: 56 kg

DRUGS (8)
  1. BUMINATE 25% [Suspect]
     Route: 042
     Dates: start: 20110602, end: 20110609
  2. BUMINATE 25% [Suspect]
     Route: 042
     Dates: start: 20110602, end: 20110609
  3. BUMINATE 25% [Suspect]
     Route: 042
     Dates: start: 20110615, end: 20110620
  4. BUMINATE 25% [Suspect]
     Route: 042
     Dates: start: 20110613, end: 20110614
  5. BUMINATE 25% [Suspect]
     Indication: NEPHROTIC SYNDROME
     Route: 042
     Dates: start: 20110525, end: 20110528
  6. BUMINATE 25% [Suspect]
     Indication: HYPOALBUMINAEMIA
     Route: 042
     Dates: start: 20110525, end: 20110528
  7. BUMINATE 25% [Suspect]
     Route: 042
     Dates: start: 20110615, end: 20110620
  8. BUMINATE 25% [Suspect]
     Route: 042
     Dates: start: 20110613, end: 20110614

REACTIONS (2)
  - C-REACTIVE PROTEIN INCREASED [None]
  - BLOOD BETA-D-GLUCAN INCREASED [None]
